FAERS Safety Report 23099413 (Version 2)
Quarter: 2023Q4

REPORT INFORMATION
  Report Type: Report from Study
  Country: TW (occurrence: TW)
  Receive Date: 20231024
  Receipt Date: 20231115
  Transmission Date: 20240110
  Serious: Yes (Other)
  Sender: FDA-Public Use
  Company Number: TW-BAYER-2023A139499

PATIENT
  Age: 84 Year
  Sex: Female

DRUGS (1)
  1. EYLEA [Suspect]
     Active Substance: AFLIBERCEPT
     Indication: Neovascular age-related macular degeneration
     Dosage: 0.05 ML, ONCE, SOLUTION FOR INJECTION, 40 MG/ML
     Route: 031
     Dates: start: 20230606

REACTIONS (3)
  - Blood pressure increased [Not Recovered/Not Resolved]
  - Drug ineffective [Unknown]
  - Vertigo [Not Recovered/Not Resolved]

NARRATIVE: CASE EVENT DATE: 20230101
